FAERS Safety Report 4639607-5 (Version None)
Quarter: 2005Q2

REPORT INFORMATION
  Report Type: 
  Country: None (occurrence: None)
  Receive Date: 20050415
  Receipt Date: 20050408
  Transmission Date: 20051028
  Serious: Yes (Hospitalization)
  Sender: FDA-Public Use
  Company Number: GXKR2005BR00888

PATIENT
  Age: 23 Year
  Sex: Female
  Weight: 54 kg

DRUGS (2)
  1. AMOXICILLIN + CLAVULANATE POTASSIUM (NGX) (AMOXICILLIN, CLAVULANATE) F [Suspect]
     Indication: TONSILLITIS
     Dosage: TID, ORAL
     Route: 048
     Dates: start: 20050321, end: 20050327
  2. CORTISONE ACETATE [Concomitant]

REACTIONS (9)
  - CONDITION AGGRAVATED [None]
  - HYPERSENSITIVITY [None]
  - ORAL INTAKE REDUCED [None]
  - PATHOGEN RESISTANCE [None]
  - PRURITUS [None]
  - RASH GENERALISED [None]
  - RASH PAPULAR [None]
  - TONSILLITIS [None]
  - WEIGHT DECREASED [None]
